FAERS Safety Report 5413784-0 (Version None)
Quarter: 2007Q3

REPORT INFORMATION
  Report Type: 
  Country: None (occurrence: None)
  Receive Date: 20070814
  Receipt Date: 20070802
  Transmission Date: 20080115
  Serious: Yes (Life-Threatening, Other)
  Sender: FDA-Public Use
  Company Number: FR-TYCO HEALTHCARE/MALLINCKRODT-T200700882

PATIENT

DRUGS (1)
  1. HEXABRIX [Suspect]
     Indication: ARTERIOGRAM CORONARY
     Dosage: UNK, SINGLE
     Dates: start: 20070130, end: 20070130

REACTIONS (3)
  - ANAPHYLACTIC SHOCK [None]
  - CHEST PAIN [None]
  - PERIPHERAL ISCHAEMIA [None]
